FAERS Safety Report 10645306 (Version 1)
Quarter: 2014Q4

REPORT INFORMATION
  Report Type: Report from Study
  Country: IN (occurrence: IN)
  Receive Date: 20141211
  Receipt Date: 20141211
  Transmission Date: 20150529
  Serious: Yes (Other)
  Sender: FDA-Public Use
  Company Number: PHHY2014IN159306

PATIENT
  Sex: Male
  Weight: 1.85 kg

DRUGS (1)
  1. GLIVEC [Suspect]
     Active Substance: IMATINIB MESYLATE
     Route: 064

REACTIONS (3)
  - Thrombocytopenia [Unknown]
  - Foetal exposure during pregnancy [Unknown]
  - Premature baby [Unknown]
